FAERS Safety Report 20605003 (Version 1)
Quarter: 2022Q1

REPORT INFORMATION
  Report Type: Other
  Country: CA (occurrence: CA)
  Receive Date: 20220317
  Receipt Date: 20220317
  Transmission Date: 20220423
  Serious: Yes (Other)
  Sender: FDA-Public Use
  Company Number: CA-CELLTRION INC.-2022CA002923

PATIENT

DRUGS (12)
  1. RITUXIMAB [Suspect]
     Active Substance: RITUXIMAB
     Indication: B-cell lymphoma
     Route: 042
  2. IBRUTINIB [Suspect]
     Active Substance: IBRUTINIB
     Indication: B-cell lymphoma
     Route: 065
  3. PREDNISONE [Suspect]
     Active Substance: PREDNISONE
     Indication: B-cell lymphoma
     Dosage: 5 MILLIGRAM
     Route: 065
  4. CYCLOPHOSPHAMIDE [Suspect]
     Active Substance: CYCLOPHOSPHAMIDE
     Indication: B-cell lymphoma
     Route: 042
  5. VINCRISTINE [Suspect]
     Active Substance: VINCRISTINE
     Indication: B-cell lymphoma
     Route: 065
  6. ASPIRIN [Concomitant]
     Active Substance: ASPIRIN
     Indication: Product used for unknown indication
     Route: 065
  7. ATENOLOL [Concomitant]
     Active Substance: ATENOLOL
     Indication: Product used for unknown indication
     Route: 065
  8. .ALPHA.-TOCOPHEROL, D- [Concomitant]
     Active Substance: .ALPHA.-TOCOPHEROL, D-
     Indication: Product used for unknown indication
     Route: 065
  9. DOCONEXENT [Concomitant]
     Active Substance: DOCONEXENT
     Indication: Product used for unknown indication
     Route: 065
  10. LOSEC [Concomitant]
     Active Substance: OMEPRAZOLE
     Indication: Product used for unknown indication
     Route: 065
  11. PROMETRIUM [Concomitant]
     Active Substance: PROGESTERONE
     Indication: Product used for unknown indication
     Route: 065
  12. VITAMIN B12 [Concomitant]
     Active Substance: CYANOCOBALAMIN
     Indication: Product used for unknown indication
     Route: 065

REACTIONS (3)
  - Cataract [Unknown]
  - Hypothyroidism [Unknown]
  - Therapeutic product effect decreased [Unknown]
